FAERS Safety Report 19058783 (Version 1)
Quarter: 2021Q1

REPORT INFORMATION
  Report Type: Spontaneous
  Country: US (occurrence: US)
  Receive Date: 20210325
  Receipt Date: 20210325
  Transmission Date: 20210420
  Serious: Yes (Other)
  Sender: FDA-Public Use
  Company Number: US-BIOMARINAP-US-2021-135635

PATIENT
  Age: 33 Year
  Sex: Male
  Weight: 74 kg

DRUGS (9)
  1. CETIRIZINE [Concomitant]
     Active Substance: CETIRIZINE HYDROCHLORIDE
     Indication: PREMEDICATION
     Dosage: 20 MILLIGRAM, BID
  2. PALYNZIQ [Suspect]
     Active Substance: PEGVALIASE-PQPZ
     Dosage: 2.5 MILLIGRAM, TID
     Route: 058
  3. PALYNZIQ [Suspect]
     Active Substance: PEGVALIASE-PQPZ
     Dosage: 20 MILLIGRAM, QD
     Route: 058
  4. RANITIDINE. [Concomitant]
     Active Substance: RANITIDINE
     Indication: PREMEDICATION
     Dosage: 150 MILLIGRAM, BID
  5. PALYNZIQ [Suspect]
     Active Substance: PEGVALIASE-PQPZ
     Dosage: 10 MILLIGRAM
     Route: 058
  6. PALYNZIQ [Suspect]
     Active Substance: PEGVALIASE-PQPZ
     Dosage: 10 MILLIGRAM
     Route: 058
  7. PALYNZIQ [Suspect]
     Active Substance: PEGVALIASE-PQPZ
     Dosage: 20 MILLIGRAM, QD
     Route: 058
  8. LORATADINE. [Concomitant]
     Active Substance: LORATADINE
     Indication: PREMEDICATION
     Dosage: 10 MILLIGRAM, BID
  9. PALYNZIQ [Suspect]
     Active Substance: PEGVALIASE-PQPZ
     Indication: PHENYLKETONURIA
     Dosage: 10 MILLIGRAM
     Route: 058

REACTIONS (17)
  - Nasal congestion [Recovered/Resolved]
  - Wheezing [Recovered/Resolved]
  - Pain [Unknown]
  - Nasal congestion [Unknown]
  - Rash macular [Recovered/Resolved]
  - Cough [Recovered/Resolved]
  - Rash [Recovered/Resolved]
  - Respiratory tract congestion [Recovering/Resolving]
  - Blister [Recovered/Resolved]
  - Rhinorrhoea [Recovered/Resolved]
  - Dyspnoea [Recovered/Resolved]
  - Pruritus [Recovered/Resolved]
  - Back pain [Recovering/Resolving]
  - Hypersensitivity [Recovered/Resolved]
  - Sneezing [Recovered/Resolved]
  - Ear swelling [Recovered/Resolved]
  - Arthralgia [Unknown]
